FAERS Safety Report 18963517 (Version 1)
Quarter: 2021Q1

REPORT INFORMATION
  Report Type: Spontaneous
  Country: US (occurrence: US)
  Receive Date: 20210303
  Receipt Date: 20210303
  Transmission Date: 20210420
  Serious: Yes (Hospitalization)
  Sender: FDA-Public Use
  Company Number: None

PATIENT
  Sex: Male
  Weight: 107.6 kg

DRUGS (2)
  1. CARBOPLATIN. [Suspect]
     Active Substance: CARBOPLATIN
     Dates: end: 20210209
  2. TAXOL [Suspect]
     Active Substance: PACLITAXEL
     Dates: end: 20210209

REACTIONS (6)
  - Nausea [None]
  - Dyspnoea [None]
  - Dehydration [None]
  - Flatulence [None]
  - Dysphagia [None]
  - Productive cough [None]

NARRATIVE: CASE EVENT DATE: 20210219
